FAERS Safety Report 6786150-3 (Version None)
Quarter: 2010Q2

REPORT INFORMATION
  Report Type: 
  Country: None (occurrence: None)
  Receive Date: 20100622
  Receipt Date: 20100622
  Transmission Date: 20101027
  Serious: No
  Sender: FDA-Public Use
  Company Number: None

PATIENT
  Age: 48 Year
  Sex: Female
  Weight: 63.5036 kg

DRUGS (2)
  1. SAVELLA [Suspect]
     Indication: FIBROMYALGIA
     Dosage: 50 MG 2 X DAILY PO
     Route: 048
     Dates: start: 20091001, end: 20100527
  2. SAVELLA [Suspect]
     Indication: FIBROMYALGIA
     Dosage: 50 MG 2 X DAILY PO
     Route: 048
     Dates: start: 20100605, end: 20100618

REACTIONS (5)
  - DYSPNOEA [None]
  - PAIN IN EXTREMITY [None]
  - PRURITUS [None]
  - SCRATCH [None]
  - SKIN IRRITATION [None]
